FAERS Safety Report 16831836 (Version 1)
Quarter: 2019Q4

REPORT INFORMATION
  Report Type: Spontaneous
  Country: US (occurrence: US)
  Receive Date: 20190919
  Receipt Date: 20190919
  Transmission Date: 20200122
  Serious: Yes (Life-Threatening)
  Sender: FDA-Public Use
  Company Number: None

PATIENT
  Age: 74 Year
  Sex: Female
  Weight: 56.7 kg

DRUGS (2)
  1. KEVZARA [Suspect]
     Active Substance: SARILUMAB
     Indication: RHEUMATOID ARTHRITIS
     Route: 058
     Dates: start: 20190703, end: 20190918
  2. KEVZARA [Suspect]
     Active Substance: SARILUMAB
     Dates: end: 20190918

REACTIONS (4)
  - Bronchitis [None]
  - Heart rate increased [None]
  - Urinary tract infection [None]
  - Pain [None]

NARRATIVE: CASE EVENT DATE: 20190918
